FAERS Safety Report 4904479-8 (Version None)
Quarter: 2006Q1

REPORT INFORMATION
  Report Type: 
  Country: None (occurrence: None)
  Receive Date: 20060208
  Receipt Date: 20050909
  Transmission Date: 20060701
  Serious: No
  Sender: FDA-Public Use
  Company Number: US-GLAXOSMITHKLINE-A0573587A

PATIENT
  Age: 57 Year
  Sex: Female

DRUGS (7)
  1. PAXIL [Suspect]
     Dosage: 30MG PER DAY
     Route: 048
     Dates: start: 20040101
  2. PAXIL CR [Suspect]
     Indication: PANIC DISORDER
     Dosage: 25MG PER DAY
     Route: 048
     Dates: start: 20050901
  3. PAROXETINE HYDROCHLORIDE [Suspect]
     Indication: PANIC ATTACK
     Route: 048
  4. KLONOPIN [Concomitant]
  5. CLIMARA [Concomitant]
  6. NEURONTIN [Concomitant]
  7. ZOMIG [Concomitant]
     Route: 065

REACTIONS (5)
  - ANXIETY [None]
  - DEPRESSION [None]
  - DRUG INEFFECTIVE [None]
  - ILL-DEFINED DISORDER [None]
  - PANIC REACTION [None]
